FAERS Safety Report 6421859-2 (Version None)
Quarter: 2009Q4

REPORT INFORMATION
  Report Type: 
  Country: None (occurrence: None)
  Receive Date: 20091030
  Receipt Date: 20091026
  Transmission Date: 20100525
  Serious: Yes (Hospitalization, Other)
  Sender: FDA-Public Use
  Company Number: US-BAYER-200915909BCC

PATIENT
  Age: 67 Year
  Sex: Female

DRUGS (7)
  1. ASPIRIN [Suspect]
     Indication: DRUG USE FOR UNKNOWN INDICATION
     Dosage: TOOK DAILY
     Route: 048
  2. PLAVIX [Suspect]
     Indication: CORONARY ARTERIAL STENT INSERTION
     Dosage: TOTAL DAILY DOSE: 75 MG  UNIT DOSE: 75 MG
     Route: 048
     Dates: start: 20070301
  3. PROTONIX [Suspect]
     Indication: GASTRIC ULCER
     Route: 065
  4. LOPRESSOR [Concomitant]
     Indication: MYOCARDIAL INFARCTION
     Route: 065
  5. ZOCOR [Concomitant]
     Route: 065
  6. LEVOTHYROXINE SODIUM [Concomitant]
     Route: 065
  7. NORVASC [Concomitant]
     Indication: BLOOD PRESSURE ABNORMAL
     Route: 065
     Dates: start: 20080101

REACTIONS (7)
  - ANXIETY [None]
  - DECREASED APPETITE [None]
  - DYSPEPSIA [None]
  - GASTRIC ULCER [None]
  - MECHANICAL URTICARIA [None]
  - PANIC ATTACK [None]
  - WEIGHT DECREASED [None]
